FAERS Safety Report 25850769 (Version 1)
Quarter: 2025Q3

REPORT INFORMATION
  Report Type: Spontaneous
  Country: CH (occurrence: CH)
  Receive Date: 20250926
  Receipt Date: 20250926
  Transmission Date: 20251020
  Serious: Yes (Other)
  Sender: JOHNSON AND JOHNSON
  Company Number: None

PATIENT
  Age: 75 Year
  Sex: Male
  Weight: 90.2 kg

DRUGS (1)
  1. REMICADE [Suspect]
     Active Substance: INFLIXIMAB
     Indication: Immune-mediated enterocolitis
     Route: 041
     Dates: start: 202501, end: 20250820

REACTIONS (12)
  - Hypothermia [Recovering/Resolving]
  - Hypertensive crisis [Recovering/Resolving]
  - Acral lentiginous melanoma [Unknown]
  - Metastases to lung [Unknown]
  - Metastases to lymph nodes [Unknown]
  - Infusion related reaction [Recovering/Resolving]
  - Hypersensitivity [Unknown]
  - Oxygen saturation decreased [Recovering/Resolving]
  - Chills [Recovering/Resolving]
  - Hyperthermia [Recovering/Resolving]
  - Drug specific antibody [Unknown]
  - Off label use [Unknown]

NARRATIVE: CASE EVENT DATE: 20250701
